FAERS Safety Report 8441242-8 (Version None)
Quarter: 2012Q2

REPORT INFORMATION
  Report Type: 
  Country: None (occurrence: None)
  Receive Date: 20120323
  Receipt Date: 20110714
  Transmission Date: 20120825
  Serious: Yes (Other)
  Sender: FDA-Public Use
  Company Number: 163-21880-11071873

PATIENT
  Age: 79 Year
  Sex: Male

DRUGS (4)
  1. REVLIMID [Suspect]
     Indication: MULTIPLE MYELOMA
     Dosage: 15 MG, 1 IN 1 D, PO; 25 MG, X 21 DAYS, PO; 5 MG, X 21 DAYS, PO
     Route: 048
     Dates: start: 20110301
  2. REVLIMID [Suspect]
     Indication: MULTIPLE MYELOMA
     Dosage: 15 MG, 1 IN 1 D, PO; 25 MG, X 21 DAYS, PO; 5 MG, X 21 DAYS, PO
     Route: 048
     Dates: start: 20110701
  3. REVLIMID [Suspect]
     Indication: MULTIPLE MYELOMA
     Dosage: 15 MG, 1 IN 1 D, PO; 25 MG, X 21 DAYS, PO; 5 MG, X 21 DAYS, PO
     Route: 048
     Dates: start: 20110501
  4. REVLIMID [Suspect]
     Indication: MULTIPLE MYELOMA
     Dosage: 10 MG, 1 IN 1 D, PO;
     Route: 048
     Dates: start: 20110201

REACTIONS (2)
  - RASH [None]
  - RENAL IMPAIRMENT [None]
